FAERS Safety Report 25691748 (Version 1)
Quarter: 2025Q3

REPORT INFORMATION
  Report Type: Other
  Country: EU (occurrence: EU)
  Receive Date: 20250818
  Receipt Date: 20250818
  Transmission Date: 20251020
  Serious: Yes (Other)
  Sender: AIRGAS
  Company Number: EU-MLMSERVICE-20250805-PI602265- 00242-1

PATIENT
  Sex: Male

DRUGS (1)
  1. NITROUS OXIDE [Suspect]
     Active Substance: NITROUS OXIDE
     Indication: Maternal exposure timing unspecified

REACTIONS (5)
  - Dysmorphism [Unknown]
  - Anaemia macrocytic [Unknown]
  - White matter lesion [Unknown]
  - Dysmorphism [Unknown]
  - Retrognathia [Unknown]
